FAERS Safety Report 5959832-0 (Version None)
Quarter: 2008Q4

REPORT INFORMATION
  Report Type: 
  Country: None (occurrence: None)
  Receive Date: 20081120
  Receipt Date: 20081113
  Transmission Date: 20090506
  Serious: Yes (Hospitalization)
  Sender: FDA-Public Use
  Company Number: B0541313A

PATIENT
  Age: 61 Year
  Sex: Male

DRUGS (4)
  1. CIMETIDINE [Suspect]
     Indication: COLON CANCER
     Route: 048
     Dates: start: 20080828
  2. ENZASTAURIN [Suspect]
     Indication: COLON CANCER
     Dosage: 375MG TWICE PER DAY
     Route: 048
     Dates: start: 20080828
  3. PREVISCAN [Concomitant]
     Dates: end: 20080929
  4. FRAXODI [Concomitant]

REACTIONS (2)
  - BACK PAIN [None]
  - INTERNATIONAL NORMALISED RATIO INCREASED [None]
